FAERS Safety Report 8547512-7 (Version None)
Quarter: 2012Q3

REPORT INFORMATION
  Report Type: 
  Country: None (occurrence: None)
  Receive Date: 20120727
  Receipt Date: 20120417
  Transmission Date: 20120928
  Serious: No
  Sender: FDA-Public Use
  Company Number: US-ASTRAZENECA-2012SE20702

PATIENT
  Age: 41 Year
  Sex: Male
  Weight: 79.8 kg

DRUGS (12)
  1. SEROQUEL [Suspect]
     Indication: PANIC ATTACK
     Route: 048
  2. SEROQUEL [Suspect]
     Route: 048
  3. SEROQUEL [Suspect]
     Route: 048
  4. SEROQUEL [Suspect]
     Indication: ANXIETY
     Route: 048
  5. SEROQUEL [Suspect]
     Route: 048
  6. SEROQUEL [Suspect]
     Route: 048
  7. SEROQUEL [Suspect]
     Route: 048
  8. SEROQUEL [Suspect]
     Indication: ALCOHOL PROBLEM
     Route: 048
  9. SEROQUEL [Suspect]
     Route: 048
  10. SEROQUEL [Suspect]
     Indication: BIPOLAR DISORDER
     Route: 048
  11. SEROQUEL [Suspect]
     Route: 048
  12. SEROQUEL [Suspect]
     Route: 048

REACTIONS (5)
  - FEELING ABNORMAL [None]
  - MEMORY IMPAIRMENT [None]
  - INTENTIONAL DRUG MISUSE [None]
  - INSOMNIA [None]
  - ADVERSE EVENT [None]
